FAERS Safety Report 7875668-8 (Version None)
Quarter: 2011Q4

REPORT INFORMATION
  Report Type: 
  Country: None (occurrence: None)
  Receive Date: 20111031
  Receipt Date: 20111020
  Transmission Date: 20120403
  Serious: Yes (Hospitalization)
  Sender: FDA-Public Use
  Company Number: US-JNJFOC-20110704681

PATIENT
  Sex: Female
  Weight: 43.09 kg

DRUGS (9)
  1. INFLIXIMAB, RECOMBINANT [Suspect]
     Indication: CROHN'S DISEASE
     Route: 042
     Dates: start: 20080115, end: 20080908
  2. VITAMIN D W/ CALCIUM [Concomitant]
  3. MULTI-VITAMINS [Concomitant]
  4. HYDROCORTISONE [Concomitant]
  5. ASCORBIC ACID [Concomitant]
  6. VITAMIN B COMPLEX CAP [Concomitant]
  7. FOLIC ACID [Concomitant]
  8. VITAMIN B-12 [Concomitant]
  9. FERROUS SULFATE TAB [Concomitant]

REACTIONS (1)
  - CROHN'S DISEASE [None]
